FAERS Safety Report 24072439 (Version 1)
Quarter: 2024Q3

REPORT INFORMATION
  Report Type: Spontaneous
  Country: US (occurrence: None)
  Receive Date: 20240709
  Receipt Date: 20240709
  Transmission Date: 20241017
  Serious: Yes (Death)
  Sender: Public
  Company Number: None

PATIENT
  Age: 67 Year
  Sex: Male
  Weight: 87.5 kg

DRUGS (4)
  1. LEQEMBI [Suspect]
     Active Substance: LECANEMAB-IRMB
     Indication: Dementia Alzheimer^s type
     Dosage: 875 MG EVERY 2 WEEKS INTRAVENOUS DRIP
     Route: 041
     Dates: start: 20230927, end: 20240605
  2. Ferrous sulfate 325mg once daily [Concomitant]
  3. Multivitamin once daily [Concomitant]
  4. Donepezil HCl (ARICEPT) 10 mg tablet once daily [Concomitant]

REACTIONS (15)
  - Back pain [None]
  - Back pain [None]
  - Dyspnoea [None]
  - Heart rate decreased [None]
  - Abdominal rigidity [None]
  - Gastric dilatation [None]
  - Peripheral swelling [None]
  - Nasopharyngitis [None]
  - Chills [None]
  - Hypoxia [None]
  - Hypokalaemia [None]
  - Brain natriuretic peptide increased [None]
  - Electrocardiogram QT prolonged [None]
  - Pulmonary embolism [None]
  - Ileus [None]

NARRATIVE: CASE EVENT DATE: 20240618
